FAERS Safety Report 19192591 (Version 2)
Quarter: 2021Q2

REPORT INFORMATION
  Report Type: Spontaneous
  Country: HK (occurrence: HK)
  Receive Date: 20210429
  Receipt Date: 20210507
  Transmission Date: 20210717
  Serious: Yes (Death)
  Sender: FDA-Public Use
  Company Number: HK-ASTRAZENECA-2021A363682

PATIENT
  Age: 52 Year
  Sex: Male

DRUGS (1)
  1. CALQUENCE [Suspect]
     Active Substance: ACALABRUTINIB
     Indication: RICHTER^S SYNDROME
     Route: 048
     Dates: start: 20210413

REACTIONS (1)
  - Death [Fatal]
